FAERS Safety Report 4299459-2 (Version None)
Quarter: 2004Q1

REPORT INFORMATION
  Report Type: 
  Country: None (occurrence: None)
  Receive Date: 20040219
  Receipt Date: 20020130
  Transmission Date: 20041129
  Serious: Yes (Disabling, Other)
  Sender: FDA-Public Use
  Company Number: US-GLAXOSMITHKLINE-A0357848A

PATIENT
  Sex: Male
  Weight: 100.5 kg

DRUGS (31)
  1. PAXIL [Suspect]
     Indication: DEPRESSION
     Route: 048
     Dates: start: 19930101
  2. COUMADIN [Concomitant]
  3. DARVON [Concomitant]
  4. TYLENOL (CAPLET) [Concomitant]
  5. MOTRIN [Concomitant]
  6. LOVENOX [Concomitant]
  7. SEPTRA DS [Concomitant]
     Dosage: 1TAB PER DAY
     Route: 048
  8. NIZORAL [Concomitant]
     Indication: RASH
  9. HYDROCORTISONE [Concomitant]
     Indication: RASH
     Route: 061
  10. ELIMITE [Concomitant]
  11. COMBIVIR [Concomitant]
     Indication: HIV INFECTION
     Dosage: 450MG TWICE PER DAY
     Route: 048
  12. FORTOVASE [Concomitant]
     Indication: HIV INFECTION
     Dosage: 200MG THREE TIMES PER DAY
     Route: 048
  13. VIRACEPT [Concomitant]
     Indication: HIV INFECTION
     Dosage: 750MG THREE TIMES PER DAY
     Route: 048
  14. ANADROL [Concomitant]
     Dosage: 50MG TWICE PER DAY
     Route: 048
  15. TRAZODONE HCL [Concomitant]
     Indication: INSOMNIA
     Dosage: 50MG AS REQUIRED
     Route: 048
  16. TESTOSTERONE [Concomitant]
     Indication: HYPOGONADISM
     Route: 042
  17. GROWTH HORMONE [Concomitant]
  18. PROZAC [Concomitant]
     Indication: DEPRESSION
     Dosage: 20MG PER DAY
     Route: 048
     Dates: start: 19890901
  19. AZT [Concomitant]
     Dosage: 200MG THREE TIMES PER DAY
  20. 3TC [Concomitant]
     Dosage: 150MG TWICE PER DAY
  21. INDINAVIR [Concomitant]
     Dosage: 800MG THREE TIMES PER DAY
  22. NIZORAL [Concomitant]
  23. ACYCLOVIR [Concomitant]
  24. LOPERAMIDE HCL [Concomitant]
     Route: 048
  25. AMOXICILLIN [Concomitant]
     Dates: start: 19931116
  26. PREDNISONE [Concomitant]
     Dates: start: 19931203
  27. VIRAMUNE [Concomitant]
     Dosage: 200MG VARIABLE DOSE
     Route: 048
  28. SONATA [Concomitant]
     Dosage: 10MG AT NIGHT
     Route: 048
  29. TRIZIVIR [Concomitant]
     Route: 048
  30. DELATESTRYL [Concomitant]
     Dosage: 200MGL AS DIRECTED
  31. SEROSTIM [Concomitant]

REACTIONS (31)
  - ABDOMINAL DISCOMFORT [None]
  - AGGRESSION [None]
  - AGITATION [None]
  - ANGER [None]
  - ANXIETY [None]
  - CONFUSIONAL STATE [None]
  - CONVULSION [None]
  - COUGH [None]
  - DEEP VEIN THROMBOSIS [None]
  - DEPENDENCE [None]
  - DEPRESSION [None]
  - DIZZINESS [None]
  - DRUG DEPENDENCE [None]
  - DRUG WITHDRAWAL SYNDROME [None]
  - INFLUENZA [None]
  - INSOMNIA [None]
  - JOINT SWELLING [None]
  - MOTOR DYSFUNCTION [None]
  - NAUSEA [None]
  - NIGHTMARE [None]
  - PAIN [None]
  - PANIC ATTACK [None]
  - PHARYNGOLARYNGEAL PAIN [None]
  - PYREXIA [None]
  - RASH ERYTHEMATOUS [None]
  - SCAB [None]
  - SENSORY DISTURBANCE [None]
  - SUICIDAL IDEATION [None]
  - TINEA VERSICOLOUR [None]
  - TREMOR [None]
  - VOMITING [None]
